FAERS Safety Report 7230522-X (Version None)
Quarter: 2011Q1

REPORT INFORMATION
  Report Type: 
  Country: None (occurrence: None)
  Receive Date: 20110118
  Receipt Date: 20110105
  Transmission Date: 20110831
  Serious: Yes (Hospitalization, Disabling)
  Sender: FDA-Public Use
  Company Number: PHHY2010FR86680

PATIENT
  Sex: Male
  Weight: 82 kg

DRUGS (4)
  1. VELMETIA [Concomitant]
     Dosage: 50/1000 MG, BID
     Dates: start: 20000101
  2. INIPOMP [Concomitant]
     Dosage: 40 MG
  3. PRETERAX [Concomitant]
     Dosage: 2 MG
     Dates: start: 20070101
  4. GLEEVEC [Suspect]
     Dosage: 400 MG DAILY
     Dates: start: 20080725

REACTIONS (13)
  - INFLAMMATION [None]
  - DECREASED APPETITE [None]
  - CHILLS [None]
  - OROPHARYNGEAL PAIN [None]
  - DYSPEPSIA [None]
  - LIP OEDEMA [None]
  - PYREXIA [None]
  - NAUSEA [None]
  - HYPERHIDROSIS [None]
  - VOMITING [None]
  - PAIN [None]
  - TOOTH DISORDER [None]
  - WEIGHT DECREASED [None]
